FAERS Safety Report 25509859 (Version 1)
Quarter: 2025Q3

REPORT INFORMATION
  Report Type: Spontaneous
  Country: US (occurrence: US)
  Receive Date: 20250703
  Receipt Date: 20250703
  Transmission Date: 20251021
  Serious: No
  Sender: RADIUS PHARM
  Company Number: US-RADIUS HEALTH INC.-2024US000838

PATIENT
  Age: 83 Year
  Sex: Female

DRUGS (2)
  1. TYMLOS [Suspect]
     Active Substance: ABALOPARATIDE
     Indication: Senile osteoporosis
     Route: 058
     Dates: start: 20240319
  2. TYMLOS [Suspect]
     Active Substance: ABALOPARATIDE
     Route: 058
     Dates: start: 20231101, end: 20240318

REACTIONS (7)
  - Feeling abnormal [Unknown]
  - Injection site pain [Unknown]
  - Abdominal pain [Unknown]
  - Injection site erythema [Unknown]
  - Off label use [Unknown]
  - Constipation [Unknown]
  - Tachycardia [Unknown]

NARRATIVE: CASE EVENT DATE: 20240319
